FAERS Safety Report 6536430-1 (Version None)
Quarter: 2010Q1

REPORT INFORMATION
  Report Type: 
  Country: None (occurrence: None)
  Receive Date: 20100113
  Receipt Date: 20100105
  Transmission Date: 20100710
  Serious: Yes (Life-Threatening)
  Sender: FDA-Public Use
  Company Number: GXKR2010GB00505

PATIENT
  Age: 66 Year
  Sex: Female

DRUGS (9)
  1. ALENDRONIC ACID (NGX) [Suspect]
     Indication: OSTEOPOROSIS
     Dosage: 70 MG, UNK
     Route: 048
     Dates: start: 20080101
  2. ACETYLSALICYLIC ACID [Concomitant]
     Dosage: 75 MG, UNK
     Route: 065
  3. FLUOXETINE [Concomitant]
     Dosage: 20 MG, QD
     Route: 065
  4. GABAPENTIN [Concomitant]
     Dosage: 600 MG, TID
     Route: 065
  5. OMEPRAZOLE [Concomitant]
     Dosage: 40 MG, UNK
     Route: 065
  6. SIMVASTATIN [Concomitant]
     Dosage: 40 MG, UNK
     Route: 065
  7. CALCIUM CARBONATE W/COLECALCIFEROL [Concomitant]
     Dosage: 2 DF, BID
     Route: 065
  8. LEVOTHYROXINE SODIUM [Concomitant]
     Dosage: 75 UG, 1 DAYS
     Route: 065
  9. TRAMADOL HCL [Concomitant]
     Dosage: 50 MG, TID
     Route: 065

REACTIONS (1)
  - OESOPHAGEAL ADENOCARCINOMA [None]
